FAERS Safety Report 14700073 (Version 2)
Quarter: 2018Q2

REPORT INFORMATION
  Report Type: Report from Study
  Country: ES (occurrence: ES)
  Receive Date: 20180330
  Receipt Date: 20180405
  Transmission Date: 20180711
  Serious: Yes (Death, Hospitalization, Other)
  Sender: FDA-Public Use
  Company Number: ES-AMGEN-ESPCT2018042016

PATIENT
  Age: 75 Year
  Sex: Male

DRUGS (7)
  1. CARBOPLATIN. [Suspect]
     Active Substance: CARBOPLATIN
     Indication: NON-SMALL CELL LUNG CANCER STAGE IV
     Dosage: 440 MG, Q3WK
     Route: 065
     Dates: start: 20170720, end: 20170802
  2. PREDNISONE. [Concomitant]
     Active Substance: PREDNISONE
  3. PEMETREXED. [Suspect]
     Active Substance: PEMETREXED
     Indication: NON-SMALL CELL LUNG CANCER STAGE IV
     Dosage: 855 MG, Q3WK
     Route: 065
     Dates: start: 20170720, end: 20170802
  4. FOLATE [Concomitant]
     Active Substance: FOLATE SODIUM
  5. DENOSUMAB [Suspect]
     Active Substance: DENOSUMAB
     Indication: NON-SMALL CELL LUNG CANCER STAGE IV
     Route: 065
  6. ZOLEDRONIC ACID [Concomitant]
     Active Substance: ZOLEDRONIC ACID
     Indication: METASTASES TO BONE
     Dosage: 4 MG, Q3WK
     Route: 042
     Dates: start: 20170720, end: 20170720
  7. VITAMIN B12 [Concomitant]
     Active Substance: CYANOCOBALAMIN

REACTIONS (4)
  - Thrombocytopenia [Not Recovered/Not Resolved]
  - Oesophagitis [Not Recovered/Not Resolved]
  - Pneumonia [Fatal]
  - Neutropenia [Not Recovered/Not Resolved]

NARRATIVE: CASE EVENT DATE: 20170724
